FAERS Safety Report 7239787-1 (Version None)
Quarter: 2011Q1

REPORT INFORMATION
  Report Type: 
  Country: None (occurrence: None)
  Receive Date: 20110122
  Receipt Date: 20101116
  Transmission Date: 20110831
  Serious: No
  Sender: FDA-Public Use
  Company Number: US-ALLERGAN-1014846US

PATIENT
  Age: 55 Year
  Sex: Female

DRUGS (2)
  1. LATISSE [Suspect]
     Indication: GROWTH OF EYELASHES
     Dosage: UNK
     Dates: start: 20101106
  2. SYNTHROID [Concomitant]
     Indication: BASEDOW'S DISEASE
     Dosage: UNK

REACTIONS (4)
  - WRONG TECHNIQUE IN DRUG USAGE PROCESS [None]
  - EYELID OEDEMA [None]
  - SCLERAL HYPERAEMIA [None]
  - EYELID PAIN [None]
